FAERS Safety Report 16802598 (Version 13)
Quarter: 2022Q1

REPORT INFORMATION
  Report Type: Report from Study
  Country: DE (occurrence: DE)
  Receive Date: 20190912
  Receipt Date: 20220226
  Transmission Date: 20220423
  Serious: Yes (Hospitalization, Other)
  Sender: FDA-Public Use
  Company Number: DE-002147023-PHHY2019DE210449

PATIENT
  Age: 45 Year
  Sex: Male
  Weight: 92 kg

DRUGS (8)
  1. ERENUMAB [Suspect]
     Active Substance: ERENUMAB
     Indication: Migraine
     Dosage: 70 MILLIGRAM
     Route: 058
     Dates: start: 20190801, end: 20190801
  2. ERENUMAB [Suspect]
     Active Substance: ERENUMAB
     Dosage: 70 MILLIGRAM
     Route: 058
     Dates: start: 20190801, end: 20190905
  3. AMITRIPTYLINE HYDROCHLORIDE [Concomitant]
     Active Substance: AMITRIPTYLINE HYDROCHLORIDE
     Indication: Migraine
     Dosage: 25 MG, QD
     Route: 048
     Dates: start: 20190408
  4. AMITRIPTYLINE HYDROCHLORIDE [Concomitant]
     Active Substance: AMITRIPTYLINE HYDROCHLORIDE
     Indication: Headache
     Dosage: 25 MG, QD
     Route: 048
     Dates: start: 20190718
  5. RIZATRIPTAN [RIZATRIPTAN BENZOATE] [Concomitant]
     Indication: Migraine
     Dosage: UNK
     Route: 048
  6. RAMIPRIL [Concomitant]
     Active Substance: RAMIPRIL
     Indication: Product used for unknown indication
     Dosage: 2.5 MG, BID
     Route: 065
  7. IBUPROFEN\PSEUDOEPHEDRINE HYDROCHLORIDE [Concomitant]
     Active Substance: IBUPROFEN\PSEUDOEPHEDRINE HYDROCHLORIDE
     Indication: Product used for unknown indication
     Dosage: UNK
     Route: 065
  8. CANDESARTAN [Concomitant]
     Active Substance: CANDESARTAN
     Indication: Hypertension
     Dosage: 16 MG, QD
     Route: 048
     Dates: start: 20171201

REACTIONS (11)
  - Ileus [Recovered/Resolved]
  - Inflammatory bowel disease [Recovering/Resolving]
  - Faecal vomiting [Recovered/Resolved]
  - Abdominal pain [Unknown]
  - Gastrointestinal sounds abnormal [Unknown]
  - Abdominal mass [Unknown]
  - Nausea [Unknown]
  - Colitis ulcerative [Recovered/Resolved]
  - Intestinal obstruction [Unknown]
  - Constipation [Unknown]
  - Colitis ulcerative [Unknown]

NARRATIVE: CASE EVENT DATE: 20190824
